FAERS Safety Report 17261400 (Version 1)
Quarter: 2020Q1

REPORT INFORMATION
  Report Type: Report from Study
  Country: IT (occurrence: IT)
  Receive Date: 20200113
  Receipt Date: 20200113
  Transmission Date: 20200409
  Serious: Yes (Hospitalization)
  Sender: FDA-Public Use
  Company Number: IT-ACCORD-169464

PATIENT
  Age: 72 Year
  Sex: Male

DRUGS (1)
  1. MYCOPHENOLIC ACID. [Suspect]
     Active Substance: MYCOPHENOLIC ACID
     Indication: RENAL TRANSPLANT
     Route: 048
     Dates: start: 20040101

REACTIONS (3)
  - Asthenia [Recovering/Resolving]
  - Pyrexia [Recovering/Resolving]
  - Mastoiditis [Recovering/Resolving]

NARRATIVE: CASE EVENT DATE: 20191115
